FAERS Safety Report 17871370 (Version 1)
Quarter: 2020Q2

REPORT INFORMATION
  Report Type: Spontaneous
  Country: US (occurrence: US)
  Receive Date: 20200608
  Receipt Date: 20200608
  Transmission Date: 20200714
  Serious: Yes (Other)
  Sender: FDA-Public Use
  Company Number: None

PATIENT
  Age: 66 Year
  Sex: Female
  Weight: 63 kg

DRUGS (1)
  1. LEVOTHYROXINE. [Suspect]
     Active Substance: LEVOTHYROXINE
     Indication: HYPOTHYROIDISM
     Dosage: ?          QUANTITY:90 TABLET(S);OTHER ROUTE:MOUTH?
     Dates: start: 20200410, end: 20200608

REACTIONS (7)
  - Insomnia [None]
  - Tachycardia [None]
  - Weight increased [None]
  - Migraine [None]
  - Temperature intolerance [None]
  - Irritability [None]
  - Hyperhidrosis [None]

NARRATIVE: CASE EVENT DATE: 20200515
